FAERS Safety Report 4302037-X (Version None)
Quarter: 2004Q1

REPORT INFORMATION
  Report Type: 
  Country: None (occurrence: None)
  Receive Date: 20040220
  Receipt Date: 20040206
  Transmission Date: 20041129
  Serious: Yes (Hospitalization)
  Sender: FDA-Public Use
  Company Number: 2004003974

PATIENT
  Age: 77 Year
  Sex: Male
  Weight: 78 kg

DRUGS (2)
  1. PHENYTOIN SODIUM [Suspect]
     Indication: EPILEPSY
     Dosage: 300 MG DAILY ORAL
     Route: 048
  2. TRAZODONE HCL [Concomitant]

REACTIONS (4)
  - DEMENTIA [None]
  - DRUG TOXICITY [None]
  - DYSARTHRIA [None]
  - SEDATION [None]
